FAERS Safety Report 12920006 (Version 1)
Quarter: 2016Q4

REPORT INFORMATION
  Report Type: Spontaneous
  Country: US (occurrence: US)
  Receive Date: 20161104
  Receipt Date: 20161104
  Transmission Date: 20170207
  Serious: Yes (Other)
  Sender: FDA-Public Use
  Company Number: None

PATIENT
  Age: 53 Year
  Sex: Female
  Weight: 81.45 kg

DRUGS (2)
  1. ESTRADIOL SANDOZ [Suspect]
     Active Substance: ESTRADIOL
  2. ESTRADIOL ALVOGEN [Suspect]
     Active Substance: ESTRADIOL
     Dosage: ?          OTHER FREQUENCY:WEEKLY;?
     Route: 062

REACTIONS (2)
  - Product adhesion issue [None]
  - Skin reaction [None]
